FAERS Safety Report 8598417-7 (Version None)
Quarter: 2012Q3

REPORT INFORMATION
  Report Type: 
  Country: None (occurrence: None)
  Receive Date: 20120816
  Receipt Date: 20120810
  Transmission Date: 20120928
  Serious: Yes (Other)
  Sender: FDA-Public Use
  Company Number: US-BAYER-2012-049630

PATIENT
  Age: 18 Year
  Sex: Female

DRUGS (1)
  1. MIRENA [Suspect]
     Indication: CONTRACEPTION
     Dosage: 20 MCG/24HR, CONT
     Route: 015
     Dates: start: 20111212

REACTIONS (23)
  - ABDOMINAL PAIN [None]
  - COITAL BLEEDING [None]
  - DYSPAREUNIA [None]
  - ABDOMINAL DISTENSION [None]
  - MENSTRUATION IRREGULAR [None]
  - FATIGUE [None]
  - AMENORRHOEA [None]
  - IRRITABILITY [None]
  - EMOTIONAL DISTRESS [None]
  - PROCEDURAL PAIN [None]
  - MENOMETRORRHAGIA [None]
  - FEELING ABNORMAL [None]
  - DEVICE DISLOCATION [None]
  - ASTHENIA [None]
  - DECREASED APPETITE [None]
  - BREAST TENDERNESS [None]
  - DEVICE COMPONENT ISSUE [None]
  - DEPRESSION [None]
  - PERSONALITY DISORDER [None]
  - VOMITING IN PREGNANCY [None]
  - DIZZINESS [None]
  - WEIGHT INCREASED [None]
  - QUALITY OF LIFE DECREASED [None]
